FAERS Safety Report 8382241-4 (Version None)
Quarter: 2012Q2

REPORT INFORMATION
  Report Type: 
  Country: None (occurrence: None)
  Receive Date: 20120503
  Receipt Date: 20120423
  Transmission Date: 20120825
  Serious: Yes (Hospitalization, Other)
  Sender: FDA-Public Use
  Company Number: AEGBR201100240

PATIENT
  Age: 34 Year
  Sex: Female
  Weight: 99.8 kg

DRUGS (9)
  1. NORETHINDRONE [Concomitant]
  2. RITUXIMAB (RITUXIMAB) [Suspect]
     Indication: HAEMATOLOGY TEST ABNORMAL
     Dosage: 375 MG/M**2;BIW;IV
     Route: 042
     Dates: start: 20100917, end: 20100924
  3. NPLATE [Suspect]
     Indication: IDIOPATHIC THROMBOCYTOPENIC PURPURA
     Dosage: 1 UG/KG; SC
     Route: 058
     Dates: start: 20100420, end: 20100920
  4. IMMUNE GLOBULIN INTRAVENOUS (HUMAN) [Suspect]
     Indication: IDIOPATHIC THROMBOCYTOPENIC PURPURA
     Dosage: 1000 MG/KG;QD; IV
     Route: 042
     Dates: start: 20100922, end: 20100923
  5. TRANEXAMIC ACID [Suspect]
     Indication: PRODUCT USED FOR UNKNOWN INDICATION
     Dosage: QID; PO
     Route: 048
     Dates: start: 20100922, end: 20100928
  6. LANSOPRAZOLE [Suspect]
     Indication: GASTROOESOPHAGEAL REFLUX PROPHYLAXIS
     Dosage: 30 MG; QD; PO
     Route: 048
     Dates: start: 20100907, end: 20100928
  7. DEXAMETHASONE [Suspect]
     Indication: ANTIEMETIC SUPPORTIVE CARE
     Dosage: PO
     Route: 048
     Dates: start: 20100905, end: 20100910
  8. VINCRISTINE [Concomitant]
  9. ANTI-D IMMUNOGLOBULIN [Concomitant]

REACTIONS (16)
  - RECTAL HAEMORRHAGE [None]
  - PROTHROMBIN TIME SHORTENED [None]
  - IDIOPATHIC THROMBOCYTOPENIC PURPURA [None]
  - RED BLOOD CELL COUNT DECREASED [None]
  - HAEMORRHAGE [None]
  - PURPURA [None]
  - MELAENA [None]
  - RASH ERYTHEMATOUS [None]
  - RASH MACULO-PAPULAR [None]
  - RASH GENERALISED [None]
  - HAEMATOCRIT DECREASED [None]
  - ARTHRALGIA [None]
  - ACTIVATED PARTIAL THROMBOPLASTIN TIME SHORTENED [None]
  - VAGINAL HAEMORRHAGE [None]
  - WHITE BLOOD CELL COUNT DECREASED [None]
  - HAEMOGLOBIN DECREASED [None]
